FAERS Safety Report 6038356-9 (Version None)
Quarter: 2009Q1

REPORT INFORMATION
  Report Type: 
  Country: None (occurrence: None)
  Receive Date: 20090115
  Receipt Date: 20090107
  Transmission Date: 20090719
  Serious: Yes (Hospitalization, Other)
  Sender: FDA-Public Use
  Company Number: CA-AVENTIS-200821712GDDC

PATIENT
  Age: 78 Year
  Sex: Female

DRUGS (7)
  1. ARAVA [Suspect]
     Indication: RHEUMATOID ARTHRITIS
     Route: 048
     Dates: start: 20081023, end: 20081025
  2. ARAVA [Suspect]
     Route: 048
     Dates: start: 20081026
  3. METHOTREXATE [Concomitant]
     Route: 058
  4. PREDNISONE [Concomitant]
     Route: 048
  5. HYDROXYCHLOROQUINE SULFATE [Concomitant]
     Route: 048
  6. FLUVOXAMINE MALEATE [Concomitant]
     Route: 048
  7. DIDRONEL [Concomitant]
     Dosage: DOSE: 1 TABLET
     Route: 048

REACTIONS (6)
  - DUODENAL ULCER [None]
  - GASTROINTESTINAL HAEMORRHAGE [None]
  - INTESTINAL PERFORATION [None]
  - LARGE INTESTINAL ULCER [None]
  - MUCOUS MEMBRANE DISORDER [None]
  - PANCYTOPENIA [None]
